FAERS Safety Report 6235792-2 (Version None)
Quarter: 2009Q2

REPORT INFORMATION
  Report Type: 
  Country: None (occurrence: None)
  Receive Date: 20090619
  Receipt Date: 20090611
  Transmission Date: 20091009
  Serious: Yes (Hospitalization)
  Sender: FDA-Public Use
  Company Number: FR-PFIZER INC-2009226214

PATIENT
  Age: 68 Year

DRUGS (6)
  1. SUTENT [Suspect]
     Indication: TRANSITIONAL CELL CARCINOMA
     Dosage: UNK
     Dates: start: 20090523
  2. SEVREDOL [Concomitant]
  3. DURAGESIC-100 [Concomitant]
  4. GLUCOPHAGE [Concomitant]
     Dosage: 2 DF, 2X/DAY (IN THE MORNING AND IN THE EVENING)
  5. POLYETHYLENE GLYCOL 3350 AND ELECTOLYTES [Concomitant]
  6. DOLIPRANE [Concomitant]
     Dosage: 2 DF, 4X/DAY

REACTIONS (2)
  - DYSURIA [None]
  - HAEMATURIA [None]
